FAERS Safety Report 5741571-2 (Version None)
Quarter: 2008Q2

REPORT INFORMATION
  Report Type: 
  Country: None (occurrence: None)
  Receive Date: 20080519
  Receipt Date: 20080331
  Transmission Date: 20081010
  Serious: Yes (Hospitalization)
  Sender: FDA-Public Use
  Company Number: FR-BAYER-200710423BFR

PATIENT
  Age: 86 Year
  Sex: Female

DRUGS (6)
  1. IZILOX [Suspect]
     Indication: BRONCHITIS
     Route: 048
     Dates: start: 20070601, end: 20070615
  2. PNEUMOREL [Suspect]
     Indication: BRONCHITIS
     Route: 048
     Dates: end: 20070615
  3. CARDENSIEL [Concomitant]
     Indication: DRUG USE FOR UNKNOWN INDICATION
     Route: 065
  4. PERINDOPRIL ERBUMINE [Concomitant]
     Indication: DRUG USE FOR UNKNOWN INDICATION
     Route: 065
  5. LASILIX [Concomitant]
     Indication: DRUG USE FOR UNKNOWN INDICATION
     Route: 065
  6. PREVISCAN [Concomitant]
     Indication: DRUG USE FOR UNKNOWN INDICATION
     Route: 065

REACTIONS (3)
  - CONFUSIONAL STATE [None]
  - DELIRIUM [None]
  - HALLUCINATION, VISUAL [None]
